FAERS Safety Report 17156833 (Version 1)
Quarter: 2019Q4

REPORT INFORMATION
  Report Type: Spontaneous
  Country: IT (occurrence: IT)
  Receive Date: 20191216
  Receipt Date: 20191216
  Transmission Date: 20200122
  Serious: Yes (Hospitalization)
  Sender: FDA-Public Use
  Company Number: IT-TEVA-2019-IT-1151069

PATIENT
  Age: 46 Year
  Sex: Female

DRUGS (2)
  1. CARBOPLATINO TEVA [Suspect]
     Active Substance: CARBOPLATIN
     Indication: OVARIAN CANCER
     Dosage: 585 MG, CYCLICAL
     Route: 042
     Dates: start: 20191107, end: 20191107
  2. PACLITAXEL TEVA [Concomitant]
     Active Substance: PACLITAXEL
     Dosage: 336 MG
     Route: 042
     Dates: start: 20191107, end: 20191107

REACTIONS (1)
  - Anaphylactic shock [Recovered/Resolved]

NARRATIVE: CASE EVENT DATE: 20191107
